FAERS Safety Report 22209069 (Version 1)
Quarter: 2023Q2

REPORT INFORMATION
  Report Type: Report from Study
  Country: US (occurrence: US)
  Receive Date: 20230413
  Receipt Date: 20230413
  Transmission Date: 20230722
  Serious: Yes (Hospitalization)
  Sender: FDA-Public Use
  Company Number: US-GILEAD-2023-0613099

PATIENT
  Age: 76 Year
  Sex: Female

DRUGS (2)
  1. AZTREONAM LYSINE [Suspect]
     Active Substance: AZTREONAM LYSINE
     Indication: Cystic fibrosis
     Dosage: 75MG AMPULES, INHAILING THE CONTENTS OF ONE VILE 3 TIMES A DAY, CONTINUOUS
     Route: 055
     Dates: start: 20220419
  2. AZTREONAM LYSINE [Suspect]
     Active Substance: AZTREONAM LYSINE
     Indication: Pseudomonas infection
     Dosage: 75 MG, TID, CAYSTON 75MG 1 VIAL 3 TIMES DAILY
     Route: 055
     Dates: start: 20220419

REACTIONS (2)
  - Dyspnoea [Recovered/Resolved]
  - Intentional dose omission [Recovered/Resolved]

NARRATIVE: CASE EVENT DATE: 20230116
